FAERS Safety Report 15492368 (Version 12)
Quarter: 2021Q2

REPORT INFORMATION
  Report Type: Spontaneous
  Country: US (occurrence: US)
  Receive Date: 20181012
  Receipt Date: 20210430
  Transmission Date: 20210716
  Serious: Yes (Hospitalization, Disabling, Other)
  Sender: FDA-Public Use
  Company Number: US-PFIZER INC-2018246981

PATIENT
  Age: 70 Year
  Sex: Female

DRUGS (2)
  1. XELJANZ [Suspect]
     Active Substance: TOFACITINIB CITRATE
     Dosage: 5 MG, UNK
     Dates: end: 201801
  2. XELJANZ [Suspect]
     Active Substance: TOFACITINIB CITRATE
     Dosage: 10 MG (TWO 5MG TABLETS), DAILY

REACTIONS (19)
  - Feeling abnormal [Not Recovered/Not Resolved]
  - Lower limb fracture [Unknown]
  - Illness [Not Recovered/Not Resolved]
  - Malaise [Unknown]
  - Mobility decreased [Unknown]
  - Product dose omission issue [Unknown]
  - Foot fracture [Unknown]
  - Emotional disorder [Unknown]
  - Stress [Unknown]
  - Carpal tunnel syndrome [Unknown]
  - Movement disorder [Unknown]
  - Skin cancer [Unknown]
  - Infection [Unknown]
  - Eye disorder [Unknown]
  - Adrenal disorder [Unknown]
  - Immunosuppression [Unknown]
  - Fall [Unknown]
  - Pain [Unknown]
  - General physical health deterioration [Unknown]
